FAERS Safety Report 8886071 (Version 2)
Quarter: 2013Q3

REPORT INFORMATION
  Report Type: Spontaneous
  Country: JP (occurrence: JP)
  Receive Date: 20121105
  Receipt Date: 20130710
  Transmission Date: 20140515
  Serious: Yes (Death, Other)
  Sender: FDA-Public Use
  Company Number: JP-EISAI INC-E7389-02958-SPO-JP

PATIENT
  Age: 52 Year
  Sex: Female
  Weight: 40 kg

DRUGS (6)
  1. HALAVEN [Suspect]
     Indication: BREAST CANCER RECURRENT
     Route: 041
     Dates: start: 20120822, end: 20120822
  2. HALAVEN [Suspect]
     Indication: METASTASES TO BONE
  3. HALAVEN [Suspect]
     Indication: METASTASES TO LIVER
  4. ZOMETA [Concomitant]
     Indication: HYPERCALCAEMIA
     Route: 042
     Dates: start: 20120823
  5. ELCTIONIN [Concomitant]
     Indication: HYPERCALCAEMIA
     Route: 065
     Dates: start: 20120818, end: 20120824
  6. LOXONIN [Concomitant]
     Indication: CANCER PAIN
     Route: 048
     Dates: start: 20120818, end: 20120824

REACTIONS (4)
  - Gastroenteritis staphylococcal [Fatal]
  - Disseminated intravascular coagulation [Fatal]
  - Febrile neutropenia [Not Recovered/Not Resolved]
  - Stomatitis [Not Recovered/Not Resolved]
